FAERS Safety Report 15014283 (Version 2)
Quarter: 2018Q3

REPORT INFORMATION
  Report Type: Spontaneous
  Country: DE (occurrence: DE)
  Receive Date: 20180615
  Receipt Date: 20180703
  Transmission Date: 20181010
  Serious: Yes (Other)
  Sender: FDA-Public Use
  Company Number: DE-JNJFOC-20180610977

PATIENT
  Age: 71 Year
  Sex: Female
  Weight: 64 kg

DRUGS (3)
  1. IBU 400 (IBUPROFEN) [Suspect]
     Active Substance: IBUPROFEN
     Indication: ERYTHEMA
     Dosage: 2 X 1
     Route: 048
     Dates: start: 20180121
  2. IBU 400 (IBUPROFEN) [Suspect]
     Active Substance: IBUPROFEN
     Indication: BACK PAIN
     Dosage: 2 X 1
     Route: 048
     Dates: start: 20180121
  3. IBU 400 (IBUPROFEN) [Suspect]
     Active Substance: IBUPROFEN
     Indication: ECZEMA
     Dosage: 2 X 1
     Route: 048
     Dates: start: 20180121

REACTIONS (4)
  - Skin necrosis [Recovered/Resolved]
  - Pruritus [Recovered/Resolved]
  - Erythema [Recovered/Resolved]
  - Perivascular dermatitis [Recovered/Resolved]

NARRATIVE: CASE EVENT DATE: 2018
